FAERS Safety Report 24783220 (Version 1)
Quarter: 2024Q4

REPORT INFORMATION
  Report Type: Report from Study
  Country: JP (occurrence: JP)
  Receive Date: 20241227
  Receipt Date: 20241227
  Transmission Date: 20250115
  Serious: Yes (Death, Hospitalization)
  Sender: SERVIER
  Company Number: JP-SERVIER-S24017345

PATIENT

DRUGS (15)
  1. PEGASPARGASE [Suspect]
     Active Substance: PEGASPARGASE
     Indication: T-cell type acute leukaemia
     Dosage: 1000 IU/M2
     Route: 065
     Dates: start: 20240627, end: 20240627
  2. PEGASPARGASE [Suspect]
     Active Substance: PEGASPARGASE
     Dosage: 2500 IU/M2
     Route: 065
     Dates: start: 20241117, end: 20241117
  3. DECADRON [Suspect]
     Active Substance: DEXAMETHASONE
     Indication: T-cell type acute leukaemia
     Dosage: UNK
     Route: 048
     Dates: start: 2024
  4. MITOXANTRONE [Concomitant]
     Active Substance: MITOXANTRONE HYDROCHLORIDE
     Indication: T-cell type acute leukaemia
     Dosage: UNK
     Route: 065
     Dates: start: 2024
  5. METHOTREXATE [Concomitant]
     Active Substance: METHOTREXATE
     Indication: T-cell type acute leukaemia
     Dosage: UNK
     Route: 065
     Dates: start: 2024
  6. METHOTREXATE [Concomitant]
     Active Substance: METHOTREXATE
     Dosage: UNK
     Route: 037
     Dates: start: 2024
  7. CYCLOPHOSPHAMIDE [Concomitant]
     Active Substance: CYCLOPHOSPHAMIDE
     Indication: T-cell type acute leukaemia
     Dosage: UNK
     Route: 065
     Dates: start: 2024
  8. ETOPOSIDE [Concomitant]
     Active Substance: ETOPOSIDE
     Indication: T-cell type acute leukaemia
     Dosage: UNK
     Route: 065
     Dates: start: 2024
  9. CYTARABINE [Concomitant]
     Active Substance: CYTARABINE
     Indication: T-cell type acute leukaemia
     Dosage: UNK
     Route: 037
     Dates: start: 2024
  10. HYDROCORTISONE SODIUM PHOSPHATE [Concomitant]
     Active Substance: HYDROCORTISONE SODIUM PHOSPHATE
     Indication: T-cell type acute leukaemia
     Dosage: UNK
     Route: 037
     Dates: start: 2024
  11. DARZALEX [Concomitant]
     Active Substance: DARATUMUMAB
     Indication: T-cell type acute leukaemia
     Dosage: UNK
     Route: 065
     Dates: start: 2024
  12. DARZALEX [Concomitant]
     Active Substance: DARATUMUMAB
     Dosage: UNK
     Dates: start: 2024
  13. DOXORUBICIN HYDROCHLORIDE [Concomitant]
     Active Substance: DOXORUBICIN HYDROCHLORIDE
     Indication: T-cell type acute leukaemia
     Dosage: UNK
     Route: 065
     Dates: start: 2024
  14. ONCOVIN [Concomitant]
     Active Substance: VINCRISTINE SULFATE
     Indication: T-cell type acute leukaemia
     Dosage: UNK
     Route: 065
     Dates: start: 2024
  15. PREDONINE [Concomitant]
     Active Substance: PREDNISOLONE
     Indication: T-cell type acute leukaemia
     Dosage: UNK
     Route: 065
     Dates: start: 2024

REACTIONS (6)
  - Malignant neoplasm progression [Fatal]
  - Hyperglycaemia [Recovered/Resolved]
  - Hyperlipidaemia [Recovering/Resolving]
  - Drug-induced liver injury [Unknown]
  - Underdose [Recovered/Resolved]
  - Inappropriate schedule of product administration [Recovered/Resolved]

NARRATIVE: CASE EVENT DATE: 20240101
